FAERS Safety Report 8174931-3 (Version None)
Quarter: 2012Q1

REPORT INFORMATION
  Report Type: 
  Country: None (occurrence: None)
  Receive Date: 20120227
  Receipt Date: 20120214
  Transmission Date: 20120608
  Serious: Yes (Life-Threatening, Hospitalization)
  Sender: FDA-Public Use
  Company Number: 2011SP020754

PATIENT
  Age: 20 Year
  Sex: Female
  Weight: 95 kg

DRUGS (1)
  1. DESOGESTREL AND ETHINYL ESTRADIOL [Suspect]
     Indication: CONTRACEPTION
     Dosage: PO
     Route: 048

REACTIONS (4)
  - LUNG CYST [None]
  - PULMONARY EMBOLISM [None]
  - PULMONARY INFARCTION [None]
  - DEEP VEIN THROMBOSIS [None]
